FAERS Safety Report 5531310-2 (Version None)
Quarter: 2007Q4

REPORT INFORMATION
  Report Type: 
  Country: None (occurrence: None)
  Receive Date: 20071128
  Receipt Date: 20071113
  Transmission Date: 20080405
  Serious: Yes (Hospitalization, Other)
  Sender: FDA-Public Use
  Company Number: 2007S1011483

PATIENT
  Age: 53 Year
  Sex: Female

DRUGS (12)
  1. DILTIAZEM [Suspect]
     Indication: ESSENTIAL HYPERTENSION
     Dosage: 300 MG; DAILY; ORAL
     Route: 048
     Dates: start: 19990302, end: 19990303
  2. ENALAPRIL [Concomitant]
  3. KERLONE [Concomitant]
  4. PLAQUENIL [Concomitant]
  5. EURELIX [Concomitant]
  6. PREDNISONE TAB [Concomitant]
  7. TAREG [Concomitant]
  8. METHOTREXATE [Concomitant]
  9. SPECIAFOLDINE [Concomitant]
  10. DIANTALVIC [Concomitant]
  11. DEROXAT [Concomitant]
  12. IMOVANE [Concomitant]

REACTIONS (2)
  - DERMATITIS EXFOLIATIVE [None]
  - EOSINOPHILIA [None]
